FAERS Safety Report 6899718-0 (Version None)
Quarter: 2010Q3

REPORT INFORMATION
  Report Type: 
  Country: None (occurrence: None)
  Receive Date: 20100708
  Receipt Date: 20090807
  Transmission Date: 20110219
  Serious: Yes (Other)
  Sender: FDA-Public Use
  Company Number: 2009254550

PATIENT
  Age: 58 Year
  Sex: Male
  Weight: 63.9 kg

DRUGS (5)
  1. CHANTIX [Suspect]
     Indication: SMOKING CESSATION THERAPY
  2. DILANTIN [Suspect]
     Indication: CONVULSION
     Dates: start: 20090601
  3. PANCREAZE [Concomitant]
  4. MEGACE [Concomitant]
  5. ALLOPURINOL [Concomitant]

REACTIONS (1)
  - THROMBOCYTOPENIA [None]
